FAERS Safety Report 9154908 (Version 2)
Quarter: 2013Q1

REPORT INFORMATION
  Report Type: Spontaneous
  Country: US (occurrence: None)
  Receive Date: 20130205
  Receipt Date: 20130312
  Transmission Date: 20140127
  Serious: Yes (Other)
  Sender: FDA-Public Use
  Company Number: US-1196370

PATIENT
  Age: 63 Year
  Sex: Female

DRUGS (5)
  1. NEVANAC [Suspect]
     Route: 047
  2. NEVANAC [Suspect]
     Route: 047
  3. DUREZOL [Suspect]
     Route: 047
  4. DUREZOL [Suspect]
     Route: 047
  5. BESIVANCE [Concomitant]

REACTIONS (2)
  - Anaphylactic reaction [None]
  - Swollen tongue [None]
